FAERS Safety Report 15612723 (Version 1)
Quarter: 2018Q4

REPORT INFORMATION
  Report Type: Spontaneous
  Country: US (occurrence: US)
  Receive Date: 20181113
  Receipt Date: 20181113
  Transmission Date: 20190205
  Serious: No
  Sender: FDA-Public Use
  Company Number: US-SUNOVION-2018SUN004397

PATIENT
  Age: 14 Month
  Sex: Female

DRUGS (1)
  1. APTIOM [Suspect]
     Active Substance: ESLICARBAZEPINE ACETATE
     Indication: PARTIAL SEIZURES
     Dosage: UNK, BASED OF WEIGHT
     Route: 048

REACTIONS (3)
  - Fatigue [Unknown]
  - Product administered to patient of inappropriate age [Unknown]
  - Irritability [Unknown]
